FAERS Safety Report 5729680-5 (Version None)
Quarter: 2008Q2

REPORT INFORMATION
  Report Type: 
  Country: None (occurrence: None)
  Receive Date: 20080506
  Receipt Date: 20080411
  Transmission Date: 20081010
  Serious: No
  Sender: FDA-Public Use
  Company Number: US-BOEHRINGER INGELHEIM GMBH, GERMANY-2007-BP-18556BP

PATIENT
  Age: 56 Year
  Sex: Female
  Weight: 106 kg

DRUGS (6)
  1. MIRAPEX [Suspect]
     Indication: RESTLESS LEGS SYNDROME
     Route: 048
     Dates: start: 20000601, end: 20070701
  2. FLUOXETINE [Concomitant]
  3. BUPROPION HCL [Concomitant]
     Dates: start: 20060101
  4. HYDROCHLOROTHIAZIDE [Concomitant]
  5. METFORMIN HCL [Concomitant]
  6. DIOVAN [Concomitant]

REACTIONS (1)
  - PATHOLOGICAL GAMBLING [None]
